FAERS Safety Report 9475232 (Version 4)
Quarter: 2013Q3

REPORT INFORMATION
  Report Type: Spontaneous
  Country: US (occurrence: US)
  Receive Date: 20130825
  Receipt Date: 20130916
  Transmission Date: 20140515
  Serious: No
  Sender: FDA-Public Use
  Company Number: US-009507513-1308USA005253

PATIENT
  Age: 44 Year
  Sex: 0

DRUGS (2)
  1. PUREGON PEN [Suspect]
     Indication: PRODUCT USED FOR UNKNOWN INDICATION
     Dosage: UNK
  2. FOLLISTIM AQ CARTRIDGE [Suspect]

REACTIONS (4)
  - Blood oestrogen decreased [Recovered/Resolved]
  - Incorrect dose administered by device [Unknown]
  - Underdose [Unknown]
  - Device malfunction [Unknown]
